FAERS Safety Report 16490766 (Version 1)
Quarter: 2019Q3

REPORT INFORMATION
  Report Type: Spontaneous
  Country: US (occurrence: US)
  Receive Date: 20190627
  Receipt Date: 20190627
  Transmission Date: 20191004
  Serious: Yes (Hospitalization)
  Sender: FDA-Public Use
  Company Number: None

PATIENT
  Age: 64 Year
  Sex: Female

DRUGS (8)
  1. SPRYCEL [Suspect]
     Active Substance: DASATINIB
     Indication: CHRONIC MYELOID LEUKAEMIA
     Route: 048
     Dates: start: 20190404
  2. ALLOPURINOL TAB 100 MG [Concomitant]
  3. ATORVASTATIN TAB 40 MG [Concomitant]
     Active Substance: ATORVASTATIN
  4. CYCLOBENZAPRINE TAB 5 MG [Concomitant]
  5. ELIQUIS TAB 5 MG [Concomitant]
  6. VIMPAT TAB 200 MG [Concomitant]
  7. TISIGNA CAP 150 MG [Concomitant]
  8. METOPROLOL TAR TAB 25 MG [Concomitant]

REACTIONS (2)
  - Transfusion [None]
  - Adverse drug reaction [None]
